FAERS Safety Report 17144288 (Version 1)
Quarter: 2019Q4

REPORT INFORMATION
  Report Type: Spontaneous
  Country: TR (occurrence: TR)
  Receive Date: 20191212
  Receipt Date: 20191212
  Transmission Date: 20200122
  Serious: Yes (Other)
  Sender: FDA-Public Use
  Company Number: TR-ASTELLAS-2019US049132

PATIENT
  Age: 77 Year
  Sex: Male

DRUGS (2)
  1. XTANDI [Suspect]
     Active Substance: ENZALUTAMIDE
     Dosage: 160 MG, ONCE DAILY (1X4)
     Route: 048
  2. XTANDI [Suspect]
     Active Substance: ENZALUTAMIDE
     Indication: HORMONE-REFRACTORY PROSTATE CANCER
     Dosage: 160 MG, ONCE DAILY (1X4)
     Route: 048
     Dates: start: 201902

REACTIONS (12)
  - Cerebrovascular disorder [Unknown]
  - Gliosis [Unknown]
  - Weight decreased [Unknown]
  - Prostatic specific antigen increased [Unknown]
  - Myopia [Unknown]
  - Hypoaesthesia [Unknown]
  - Headache [Unknown]
  - Chest pain [Unknown]
  - Fatigue [Unknown]
  - Bone pain [Unknown]
  - Insomnia [Unknown]
  - Treatment noncompliance [Unknown]

NARRATIVE: CASE EVENT DATE: 201903
